FAERS Safety Report 9772081 (Version 1)
Quarter: 2013Q4

REPORT INFORMATION
  Report Type: Spontaneous
  Country: US (occurrence: US)
  Receive Date: 20131219
  Receipt Date: 20131219
  Transmission Date: 20140711
  Serious: Yes (Death)
  Sender: FDA-Public Use
  Company Number: US-JNJFOC-20131211421

PATIENT
  Sex: 0

DRUGS (3)
  1. SIMPONI [Suspect]
     Indication: RHEUMATOID ARTHRITIS
     Route: 058
  2. HYDROCORTISONE [Concomitant]
     Route: 065
  3. ARAVA [Concomitant]
     Route: 065

REACTIONS (1)
  - Necrotising fasciitis [Fatal]
